FAERS Safety Report 8589489-4 (Version None)
Quarter: 2012Q3

REPORT INFORMATION
  Report Type: 
  Country: None (occurrence: None)
  Receive Date: 20120813
  Receipt Date: 20120807
  Transmission Date: 20120928
  Serious: Yes (Hospitalization, Other)
  Sender: FDA-Public Use
  Company Number: IE-ELI_LILLY_AND_COMPANY-IE201208002278

PATIENT
  Sex: Female

DRUGS (19)
  1. LIDOCAINE [Concomitant]
  2. ASACOLON [Concomitant]
  3. CALCICHEW-D3 FORTE [Concomitant]
  4. DURAGESIC-100 [Concomitant]
  5. IMOVANE [Concomitant]
  6. FORTEO [Suspect]
     Indication: OSTEOPOROSIS
     Dosage: 20 UG, QD
     Route: 058
     Dates: start: 20120629
  7. ATENOLOL [Concomitant]
  8. IMURAN [Concomitant]
  9. EZETIMIBE [Concomitant]
  10. BENDROFLUMETHIAZIDE [Concomitant]
  11. OXYCODONE HYDROCHLORIDE [Concomitant]
  12. ASPIRIN [Concomitant]
  13. MOVIPREP [Concomitant]
  14. NEXIUM [Concomitant]
  15. ACETAMINOPHEN [Concomitant]
  16. FLOXACILLIN SODIUM [Concomitant]
  17. TARGIN [Concomitant]
  18. COZAAR [Concomitant]
  19. DELTACORTRIL [Concomitant]

REACTIONS (2)
  - BACK PAIN [None]
  - SPINAL COMPRESSION FRACTURE [None]
